FAERS Safety Report 18769054 (Version 3)
Quarter: 2022Q2

REPORT INFORMATION
  Report Type: Spontaneous
  Country: US (occurrence: US)
  Receive Date: 20210121
  Receipt Date: 20220413
  Transmission Date: 20220720
  Serious: No
  Sender: FDA-Public Use
  Company Number: US-PFIZER INC-2021035891

PATIENT
  Age: 85 Year
  Sex: Male

DRUGS (2)
  1. INLYTA [Suspect]
     Active Substance: AXITINIB
     Dosage: 5 MG
     Dates: end: 20210110
  2. INLYTA [Suspect]
     Active Substance: AXITINIB
     Dosage: 3 DF (3 TABLETS OF 1 MG), 2X/DAY (2 DF IN THE MORNING AND 1 DF IN THE EVENING)

REACTIONS (3)
  - Dysphonia [Unknown]
  - Diarrhoea [Unknown]
  - Fatigue [Unknown]
